FAERS Safety Report 7081933-7 (Version None)
Quarter: 2010Q4

REPORT INFORMATION
  Report Type: 
  Country: None (occurrence: None)
  Receive Date: 20101103
  Receipt Date: 20101029
  Transmission Date: 20110411
  Serious: Yes (Other)
  Sender: FDA-Public Use
  Company Number: BR-PFIZER INC-2010138172

PATIENT
  Age: 64 Year
  Sex: Male

DRUGS (1)
  1. CHAMPIX [Suspect]
     Indication: SMOKING CESSATION THERAPY
     Dosage: UNK, KIT COMPLETED TREATMENT
     Route: 048
     Dates: start: 20100101, end: 20100101

REACTIONS (4)
  - DIZZINESS [None]
  - HEADACHE [None]
  - JOINT DISLOCATION [None]
  - NAUSEA [None]
